FAERS Safety Report 13656140 (Version 1)
Quarter: 2017Q2

REPORT INFORMATION
  Report Type: Other
  Country: TR (occurrence: TR)
  Receive Date: 20170615
  Receipt Date: 20170615
  Transmission Date: 20170830
  Serious: Yes (Hospitalization)
  Sender: FDA-Public Use
  Company Number: TR-ORCHID HEALTHCARE-2022061

PATIENT
  Age: 15 Year
  Sex: Male

DRUGS (3)
  1. D-ALPHA-TOCOPHEROL [Concomitant]
     Route: 065
  2. OLANZAPINE. [Suspect]
     Active Substance: OLANZAPINE
     Indication: SCHIZOPHRENIA
     Route: 065
  3. URSODEOXYCHOLIC ACID [Concomitant]
     Active Substance: URSODIOL
     Route: 065

REACTIONS (2)
  - Extrapyramidal disorder [Unknown]
  - Hepatotoxicity [Recovered/Resolved]
